FAERS Safety Report 8335817-4 (Version None)
Quarter: 2012Q2

REPORT INFORMATION
  Report Type: 
  Country: None (occurrence: None)
  Receive Date: 20120504
  Receipt Date: 20120424
  Transmission Date: 20120825
  Serious: Yes (Other)
  Sender: FDA-Public Use
  Company Number: US-SHIRE-ALL1-2012-02058

PATIENT
  Sex: Female
  Weight: 61.224 kg

DRUGS (5)
  1. VYVANSE [Suspect]
     Dosage: 30 MG, 1X/DAY:QD
     Route: 048
     Dates: start: 20110101, end: 20110101
  2. WELLBUTRIN [Suspect]
     Indication: DEPRESSION
     Dosage: UNK, 1X/DAY:QD
     Route: 048
     Dates: start: 20120201
  3. AMOXAPINE [Suspect]
     Indication: DEPRESSION
     Dosage: UNK, 1X/DAY:QD
     Route: 048
     Dates: start: 20110101, end: 20120101
  4. LEXAPRO [Suspect]
     Indication: DEPRESSION
     Dosage: UNK, 1X/DAY:QD
     Dates: start: 20120201
  5. VYVANSE [Suspect]
     Indication: ATTENTION DEFICIT/HYPERACTIVITY DISORDER
     Dosage: 50 MG, 3-4 TIMES PER WEEK AS REQ'D
     Route: 048
     Dates: start: 20110101

REACTIONS (10)
  - DRUG INEFFECTIVE [None]
  - DEPRESSION [None]
  - DRUG PRESCRIBING ERROR [None]
  - CHILLS [None]
  - SLUGGISHNESS [None]
  - DISTURBANCE IN ATTENTION [None]
  - PYREXIA [None]
  - PRODUCT QUALITY ISSUE [None]
  - YAWNING [None]
  - TREMOR [None]
